FAERS Safety Report 9851644 (Version 1)
Quarter: 2014Q1

REPORT INFORMATION
  Report Type: Spontaneous
  Country: US (occurrence: US)
  Receive Date: 20140129
  Receipt Date: 20140129
  Transmission Date: 20141002
  Serious: No
  Sender: FDA-Public Use
  Company Number: US-BIOGENIDEC-2014BI007271

PATIENT
  Age: 41 Year
  Sex: Female
  Weight: 113 kg

DRUGS (11)
  1. TECFIDERA [Suspect]
     Indication: MULTIPLE SCLEROSIS
     Route: 048
     Dates: start: 20140107
  2. TECFIDERA [Suspect]
     Indication: MULTIPLE SCLEROSIS
     Route: 048
  3. ADVIL [Concomitant]
  4. ASPIRIN EC [Concomitant]
  5. BACLOFEN [Concomitant]
  6. NEURONTIN [Concomitant]
  7. OSTEO BI-FLEX [Concomitant]
  8. REQUIP [Concomitant]
  9. VITAMIN D 1000 [Concomitant]
  10. ZIAC 10-6.25 [Concomitant]
  11. ZOLOFT [Concomitant]

REACTIONS (3)
  - Constipation [Not Recovered/Not Resolved]
  - Headache [Not Recovered/Not Resolved]
  - Flushing [Not Recovered/Not Resolved]
